FAERS Safety Report 17004976 (Version 1)
Quarter: 2019Q4

REPORT INFORMATION
  Report Type: Spontaneous
  Country: US (occurrence: US)
  Receive Date: 20190925
  Receipt Date: 20190925
  Transmission Date: 20200122
  Serious: Yes (Hospitalization)
  Sender: FDA-Public Use
  Company Number: None

PATIENT
  Age: 56 Year
  Sex: Male

DRUGS (1)
  1. DIVALPROEX [Suspect]
     Active Substance: DIVALPROEX SODIUM
     Indication: BIPOLAR I DISORDER
     Route: 048
     Dates: start: 20130901, end: 20190716

REACTIONS (5)
  - Treatment noncompliance [None]
  - Facial paralysis [None]
  - Asthenia [None]
  - Toxic encephalopathy [None]
  - Mental status changes [None]

NARRATIVE: CASE EVENT DATE: 20190716
